FAERS Safety Report 6212994-2 (Version None)
Quarter: 2009Q2

REPORT INFORMATION
  Report Type: 
  Country: None (occurrence: None)
  Receive Date: 20090528
  Receipt Date: 20090130
  Transmission Date: 20091009
  Serious: Yes (Death, Other)
  Sender: FDA-Public Use
  Company Number: 184601USA

PATIENT
  Sex: Male

DRUGS (2)
  1. PROMPT PHENYTOIN SODIUM [Suspect]
     Indication: CONVULSION
     Dates: start: 20020701
  2. FOSPHENYTOIN [Suspect]
     Dates: start: 20020701

REACTIONS (9)
  - ACUTE GENERALISED EXANTHEMATOUS PUSTULOSIS [None]
  - BLISTER [None]
  - DRUG RASH WITH EOSINOPHILIA AND SYSTEMIC SYMPTOMS [None]
  - ERYTHEMA MULTIFORME [None]
  - RASH [None]
  - SKIN DISORDER [None]
  - SKIN INFECTION [None]
  - STEVENS-JOHNSON SYNDROME [None]
  - TOXIC EPIDERMAL NECROLYSIS [None]
